FAERS Safety Report 8357592-X (Version None)
Quarter: 2012Q2

REPORT INFORMATION
  Report Type: 
  Country: None (occurrence: None)
  Receive Date: 20120514
  Receipt Date: 20110711
  Transmission Date: 20120825
  Serious: No
  Sender: FDA-Public Use
  Company Number: US-TEVA-2011003657

PATIENT
  Sex: Female
  Weight: 93.07 kg

DRUGS (2)
  1. NUVIGIL [Suspect]
     Indication: NARCOLEPSY
     Dosage: 250 MILLIGRAM;
     Route: 048
     Dates: start: 20110630, end: 20110711
  2. PREMARIN [Concomitant]
     Dates: start: 19990101

REACTIONS (4)
  - DYSPNOEA [None]
  - HEADACHE [None]
  - MOUTH ULCERATION [None]
  - DRY MOUTH [None]
